FAERS Safety Report 5085845-X (Version None)
Quarter: 2006Q3

REPORT INFORMATION
  Report Type: 
  Country: None (occurrence: None)
  Receive Date: 20060817
  Receipt Date: 20060809
  Transmission Date: 20061208
  Serious: Yes (Life-Threatening)
  Sender: FDA-Public Use
  Company Number: 2006US-03269

PATIENT
  Age: 15 Year
  Sex: Female

DRUGS (1)
  1. ISOTRETINOIN [Suspect]
     Dosage: 40 MG, QD,
     Dates: start: 20060523, end: 20060615

REACTIONS (3)
  - DEPRESSED MOOD [None]
  - FEELINGS OF WORTHLESSNESS [None]
  - SUICIDAL IDEATION [None]
